FAERS Safety Report 6397739-8 (Version None)
Quarter: 2009Q4

REPORT INFORMATION
  Report Type: 
  Country: None (occurrence: None)
  Receive Date: 20091012
  Receipt Date: 20091007
  Transmission Date: 20100525
  Serious: Yes (Life-Threatening, Other)
  Sender: FDA-Public Use
  Company Number: US-ELI_LILLY_AND_COMPANY-US200910001641

PATIENT
  Age: 77 Year
  Sex: Female

DRUGS (5)
  1. GEMZAR [Suspect]
     Indication: NON-HODGKIN'S LYMPHOMA
     Dosage: 1590 MG, OTHER
  2. RITUXAN [Concomitant]
     Indication: NON-HODGKIN'S LYMPHOMA
  3. OXALIPLATIN [Concomitant]
     Indication: NON-HODGKIN'S LYMPHOMA
  4. DEXAMETHASONE 0.5MG TAB [Concomitant]
  5. ANTIEMETICS AND ANTINAUSEANTS [Concomitant]

REACTIONS (3)
  - CARDIAC ARREST [None]
  - MYOCARDIAL INFARCTION [None]
  - OFF LABEL USE [None]
